FAERS Safety Report 7702082-8 (Version None)
Quarter: 2011Q3

REPORT INFORMATION
  Report Type: 
  Country: None (occurrence: None)
  Receive Date: 20110822
  Receipt Date: 20110608
  Transmission Date: 20111222
  Serious: Yes (Hospitalization, Other)
  Sender: FDA-Public Use
  Company Number: US-BAYER-201027364GPV

PATIENT
  Age: 46 Year
  Sex: Female

DRUGS (2)
  1. NAPROXEN [Suspect]
     Indication: BACK PAIN
  2. METHADONE HYDROCHLORIDE [Suspect]
     Indication: BACK PAIN

REACTIONS (8)
  - MUCOSAL ULCERATION [None]
  - NAUSEA [None]
  - VOMITING [None]
  - CONSTIPATION [None]
  - INTESTINAL OBSTRUCTION [None]
  - INTESTINAL DIAPHRAGM DISEASE [None]
  - GASTROINTESTINAL DISORDER [None]
  - ABDOMINAL PAIN LOWER [None]
